FAERS Safety Report 24632032 (Version 1)
Quarter: 2024Q4

REPORT INFORMATION
  Report Type: Spontaneous
  Country: US (occurrence: US)
  Receive Date: 20241118
  Receipt Date: 20241118
  Transmission Date: 20250115
  Serious: Yes (Other)
  Sender: GILEAD
  Company Number: US-GILEAD-2024-0693666

PATIENT
  Age: 33 Year
  Sex: Male

DRUGS (6)
  1. LENACAPAVIR [Suspect]
     Active Substance: LENACAPAVIR
     Indication: HIV infection
     Dosage: 463.5MG/1.5 ML
     Route: 058
     Dates: start: 20241104
  2. PIFELTRO [Concomitant]
     Active Substance: DORAVIRINE
     Indication: HIV infection
     Dosage: 100 MG, TABLET
  3. CREATINE [Concomitant]
     Active Substance: CREATINE
     Dosage: POWDER
  4. VITAMIN C [Concomitant]
     Active Substance: ASCORBIC ACID
  5. DAPSONE [Concomitant]
     Active Substance: DAPSONE
     Indication: Acne
  6. SYMTUZA [Concomitant]
     Active Substance: COBICISTAT\DARUNAVIR\EMTRICITABINE\TENOFOVIR ALAFENAMIDE
     Indication: HIV infection

REACTIONS (2)
  - Skin induration [Not Recovered/Not Resolved]
  - Wound complication [Not Recovered/Not Resolved]

NARRATIVE: CASE EVENT DATE: 20241111
